FAERS Safety Report 10254853 (Version 1)
Quarter: 2014Q2

REPORT INFORMATION
  Report Type: Spontaneous
  Country: US (occurrence: US)
  Receive Date: 20140624
  Receipt Date: 20140624
  Transmission Date: 20141212
  Serious: Yes (Other)
  Sender: FDA-Public Use
  Company Number: US-ELI_LILLY_AND_COMPANY-US201406004408

PATIENT
  Sex: Male

DRUGS (2)
  1. HUMALOG LISPRO [Suspect]
     Indication: TYPE 1 DIABETES MELLITUS
     Dosage: 15 U, TID
     Route: 065
  2. LANTUS [Concomitant]
     Dosage: 70 U, EACH MORNING

REACTIONS (5)
  - Dementia [Unknown]
  - Cardiac disorder [Unknown]
  - Thyroid disorder [Unknown]
  - Tremor [Unknown]
  - Incorrect dosage administered [Recovered/Resolved]
